FAERS Safety Report 22075735 (Version 1)
Quarter: 2023Q1

REPORT INFORMATION
  Report Type: Spontaneous
  Country: JP (occurrence: JP)
  Receive Date: 20230308
  Receipt Date: 20230308
  Transmission Date: 20230417
  Serious: Yes (Other)
  Sender: FDA-Public Use
  Company Number: JP-SA-2023SA071248

PATIENT
  Age: 11 Month
  Sex: Female
  Weight: 10.1 kg

DRUGS (5)
  1. SABRIL [Suspect]
     Active Substance: VIGABATRIN
     Indication: Infantile spasms
     Dosage: 500 MG, BID
     Route: 048
     Dates: start: 20210726
  2. SABRIL [Suspect]
     Active Substance: VIGABATRIN
     Dosage: 200 MG, BID
     Route: 048
     Dates: start: 20210707, end: 20210711
  3. SABRIL [Suspect]
     Active Substance: VIGABATRIN
     Dosage: 300 MG, BID
     Route: 048
     Dates: start: 20210712, end: 20210717
  4. SABRIL [Suspect]
     Active Substance: VIGABATRIN
     Dosage: 400 MG, BID
     Route: 048
     Dates: start: 20210718, end: 20210725
  5. VALPROATE SODIUM [Concomitant]
     Active Substance: VALPROATE SODIUM
     Indication: Infantile spasms
     Dosage: DAILY DOSE: 100 MG
     Route: 048
     Dates: start: 20210524

REACTIONS (2)
  - Optic glioma [Not Recovered/Not Resolved]
  - Skin depigmentation [Not Recovered/Not Resolved]

NARRATIVE: CASE EVENT DATE: 20211014
